FAERS Safety Report 5593528-2 (Version None)
Quarter: 2008Q1

REPORT INFORMATION
  Report Type: 
  Country: None (occurrence: None)
  Receive Date: 20080116
  Receipt Date: 20080110
  Transmission Date: 20080703
  Serious: Yes (Other)
  Sender: FDA-Public Use
  Company Number: GB-ROCHE-540870

PATIENT
  Age: 60 Year
  Sex: Female
  Weight: 83.8 kg

DRUGS (5)
  1. ORLISTAT [Suspect]
     Indication: OBESITY
     Route: 048
     Dates: start: 20070929, end: 20071115
  2. LANSOPRAZOLE [Concomitant]
     Indication: HIATUS HERNIA
     Dosage: DATE STARTED: } 3 YEARS
     Route: 048
  3. LEVOTHYROXINE SODIUM [Concomitant]
     Dosage: INDICATION: THYROID, DATE STARTED: } 20 YEARS
     Route: 048
  4. 1 CONCOMITANT DRUG [Concomitant]
     Indication: CARDIAC DISORDER
     Dosage: DRUG NAME: BISEPROLE, DATE STARTED: } 2 YEARS
     Route: 048
  5. PARAMAX [Concomitant]
     Indication: MIGRAINE
     Dosage: DATE STARTED: } 3 YEARS
     Route: 048

REACTIONS (1)
  - ATRIAL FIBRILLATION [None]
